FAERS Safety Report 12643637 (Version 1)
Quarter: 2016Q3

REPORT INFORMATION
  Report Type: Spontaneous
  Country: GB (occurrence: GB)
  Receive Date: 20160811
  Receipt Date: 20160811
  Transmission Date: 20161109
  Serious: Yes (Other)
  Sender: FDA-Public Use
  Company Number: GB-AUROBINDO-AUR-APL-2016-09937

PATIENT
  Age: 44 Year
  Sex: Male
  Weight: 84 kg

DRUGS (2)
  1. KETOTIFEN [Concomitant]
     Active Substance: KETOTIFEN
     Indication: PRODUCT USED FOR UNKNOWN INDICATION
     Dosage: 1 GTT, TWO TIMES A DAY
     Route: 065
     Dates: start: 20160720
  2. MONTELUKAST [Suspect]
     Active Substance: MONTELUKAST SODIUM
     Indication: PRODUCT USED FOR UNKNOWN INDICATION
     Route: 065
     Dates: start: 20160720

REACTIONS (1)
  - Episcleritis [Recovered/Resolved]

NARRATIVE: CASE EVENT DATE: 20160720
